FAERS Safety Report 5535043-8 (Version None)
Quarter: 2007Q4

REPORT INFORMATION
  Report Type: 
  Country: None (occurrence: None)
  Receive Date: 20071203
  Receipt Date: 20071116
  Transmission Date: 20080405
  Serious: Yes (Life-Threatening, Hospitalization)
  Sender: FDA-Public Use
  Company Number: 2007US002862

PATIENT
  Age: 69 Year
  Sex: Male

DRUGS (7)
  1. PROGRAF [Suspect]
     Indication: LIVER TRANSPLANT
     Dosage: 2 MG, BID, ORAL
     Route: 048
     Dates: start: 20070328
  2. MYCOPHENOLATE MOFETIL [Suspect]
     Indication: LIVER TRANSPLANT
     Dosage: 500 MG, BID, ORAL
     Route: 048
     Dates: start: 20070328
  3. PREDNISOLONE ACETATE [Suspect]
     Indication: LIVER TRANSPLANT
     Dosage: 5 MG, UID/QD, ORAL
     Route: 048
     Dates: start: 20070328
  4. SEPTRA [Concomitant]
  5. VALCYTE [Concomitant]
  6. NEXIUM [Concomitant]
  7. ASPIRIN [Concomitant]

REACTIONS (1)
  - HEPATIC NEOPLASM MALIGNANT RECURRENT [None]
